FAERS Safety Report 5913012-3 (Version None)
Quarter: 2008Q4

REPORT INFORMATION
  Report Type: 
  Country: None (occurrence: None)
  Receive Date: 20081008
  Receipt Date: 20080926
  Transmission Date: 20090506
  Serious: Yes (Other)
  Sender: FDA-Public Use
  Company Number: US-PFIZER INC-2008082316

PATIENT
  Sex: Female
  Weight: 78.181 kg

DRUGS (3)
  1. LYRICA [Suspect]
     Indication: NEUROPATHY PERIPHERAL
     Dates: start: 20080801
  2. ALLEGRA [Concomitant]
  3. SYNTHROID [Concomitant]

REACTIONS (9)
  - ANXIETY [None]
  - ARRHYTHMIA [None]
  - BURNING SENSATION [None]
  - CARDIAC DISORDER [None]
  - CHEST DISCOMFORT [None]
  - MUSCULAR WEAKNESS [None]
  - MYALGIA [None]
  - PAIN IN EXTREMITY [None]
  - PRURITUS [None]
